FAERS Safety Report 19804399 (Version 1)
Quarter: 2021Q3

REPORT INFORMATION
  Report Type: Spontaneous
  Country: US (occurrence: US)
  Receive Date: 20210908
  Receipt Date: 20210908
  Transmission Date: 20211014
  Serious: No
  Sender: FDA-Public Use
  Company Number: US-FARMAPROD-202106-0863

PATIENT
  Sex: Female
  Weight: 63.11 kg

DRUGS (8)
  1. OXERVATE [Suspect]
     Active Substance: CENEGERMIN-BKBJ
     Indication: HERPES OPHTHALMIC
  2. VALACYCLOVIR [Concomitant]
     Active Substance: VALACYCLOVIR HYDROCHLORIDE
  3. FAMCICLOVIR. [Concomitant]
     Active Substance: FAMCICLOVIR
  4. OXERVATE [Suspect]
     Active Substance: CENEGERMIN-BKBJ
     Indication: NEUROTROPHIC KERATOPATHY
     Route: 047
     Dates: start: 20210428
  5. MAGNESIUM [Concomitant]
     Active Substance: MAGNESIUM
  6. CALCIUM/VITAMINE D3 [Concomitant]
     Dosage: 600 MG?12.5 MG
  7. MOXIFLOXACIN. [Concomitant]
     Active Substance: MOXIFLOXACIN
  8. PREDNISOLONE/NEPAFENAC [Concomitant]

REACTIONS (1)
  - Ocular discomfort [Unknown]
